FAERS Safety Report 5586019-6 (Version None)
Quarter: 2007Q4

REPORT INFORMATION
  Report Type: 
  Country: None (occurrence: None)
  Receive Date: 20071205
  Receipt Date: 20070501
  Transmission Date: 20080405
  Serious: Yes (Hospitalization)
  Sender: FDA-Public Use
  Company Number: HQWYE945802MAY07

PATIENT
  Age: 50 Year
  Sex: Female
  Weight: 83.99 kg

DRUGS (2)
  1. EFFEXOR XR [Suspect]
     Indication: DEPRESSION
     Dosage: 75 MG 1X PER 1 DAY, ORAL
     Route: 048
     Dates: start: 20070403
  2. CLIMARA PRO [Concomitant]

REACTIONS (2)
  - ELECTROCARDIOGRAM QT INTERVAL [None]
  - HEART RATE INCREASED [None]
